FAERS Safety Report 4939257-7 (Version None)
Quarter: 2006Q1

REPORT INFORMATION
  Report Type: 
  Country: None (occurrence: None)
  Receive Date: 20060309
  Receipt Date: 20060309
  Transmission Date: 20060701
  Serious: No
  Sender: FDA-Public Use
  Company Number: None

PATIENT
  Sex: Female

DRUGS (2)
  1. OXYCONTIN [Suspect]
     Indication: INTERVERTEBRAL DISC DEGENERATION
     Dosage: 80   ONE TID
     Dates: start: 20010305
  2. OXYCONTIN [Suspect]
     Indication: SPINAL LAMINECTOMY
     Dosage: 80   ONE TID
     Dates: start: 20010305

REACTIONS (2)
  - DYSPNOEA [None]
  - RASH [None]
